FAERS Safety Report 10502995 (Version 1)
Quarter: 2014Q4

REPORT INFORMATION
  Report Type: Spontaneous
  Country: US (occurrence: US)
  Receive Date: 20141007
  Receipt Date: 20141007
  Transmission Date: 20150528
  Serious: Yes (Other)
  Sender: FDA-Public Use
  Company Number: US-ABBVIE-14P-163-1290902-00

PATIENT
  Sex: Female
  Weight: 74.91 kg

DRUGS (3)
  1. SYNTHROID [Suspect]
     Active Substance: LEVOTHYROXINE SODIUM
     Route: 048
  2. SYNTHROID [Suspect]
     Active Substance: LEVOTHYROXINE SODIUM
     Indication: HYPOTHYROIDISM
     Route: 048
     Dates: start: 1994, end: 2009
  3. SYNTHROID [Suspect]
     Active Substance: LEVOTHYROXINE SODIUM
     Dosage: VARIED DOSES, SOMETIMES UP TO 125 MCG
     Route: 048
     Dates: start: 2009

REACTIONS (8)
  - Goitre [Not Recovered/Not Resolved]
  - Thyroid neoplasm [Not Recovered/Not Resolved]
  - Thyroid function test abnormal [Not Recovered/Not Resolved]
  - Constipation [Recovered/Resolved]
  - Nausea [Recovered/Resolved]
  - Disturbance in attention [Recovered/Resolved]
  - Coeliac disease [Not Recovered/Not Resolved]
  - Abdominal pain [Recovered/Resolved]

NARRATIVE: CASE EVENT DATE: 2009
